FAERS Safety Report 7526045-0 (Version None)
Quarter: 2011Q2

REPORT INFORMATION
  Report Type: 
  Country: None (occurrence: None)
  Receive Date: 20110606
  Receipt Date: 20110524
  Transmission Date: 20111010
  Serious: Yes (Other)
  Sender: FDA-Public Use
  Company Number: US-CELGENEUS-163-21880-11053372

PATIENT
  Sex: Male

DRUGS (15)
  1. GABAPENTIN [Concomitant]
     Route: 065
  2. IMDUR [Concomitant]
     Route: 065
  3. SIMVASTATIN [Concomitant]
     Route: 065
  4. VITAMIN D [Concomitant]
     Route: 065
  5. LANTUS [Concomitant]
     Route: 065
  6. SLOW MAG [Concomitant]
     Route: 065
  7. REVLIMID [Suspect]
     Indication: MYELODYSPLASTIC SYNDROME
     Dosage: 5 MILLIGRAM
     Route: 048
     Dates: start: 20101224
  8. PROCRIT [Concomitant]
     Route: 065
  9. ZOCOR [Concomitant]
     Route: 065
  10. ALLOPURINOL [Concomitant]
     Route: 065
  11. REVLIMID [Suspect]
     Dosage: 10 MILLIGRAM
     Route: 048
     Dates: start: 20100527
  12. AMITRIPTYLINE HCL [Concomitant]
     Route: 065
  13. AMOXICILLIN [Concomitant]
     Route: 065
  14. ARICEPT [Concomitant]
     Route: 065
  15. KLOR-CON [Concomitant]
     Route: 065

REACTIONS (2)
  - DIABETIC ULCER [None]
  - ARTERIAL OCCLUSIVE DISEASE [None]
